FAERS Safety Report 10902612 (Version 3)
Quarter: 2015Q1

REPORT INFORMATION
  Report Type: Spontaneous
  Country: US (occurrence: US)
  Receive Date: 20150310
  Receipt Date: 20150324
  Transmission Date: 20150721
  Serious: Yes (Life-Threatening, Hospitalization, Other)
  Sender: FDA-Public Use
  Company Number: US-GILEAD-2015-0140712

PATIENT
  Age: 67 Year
  Sex: Male

DRUGS (5)
  1. PROPAFENONE. [Suspect]
     Active Substance: PROPAFENONE
     Indication: CARDIAC DISORDER
     Dosage: 425 MG, UNK
     Route: 048
     Dates: start: 201103
  2. VERAPAMIL [Suspect]
     Active Substance: VERAPAMIL HYDROCHLORIDE
     Indication: CARDIAC DISORDER
     Dosage: 200 MG, QD
     Route: 048
  3. METOPROLOL SUCCINATE. [Suspect]
     Active Substance: METOPROLOL SUCCINATE
     Indication: CARDIAC DISORDER
     Dosage: 50 MG, QD
     Route: 048
  4. ASPIRIN 81 [Concomitant]
     Dosage: 81 MG, QD
     Route: 048
  5. HARVONI [Suspect]
     Active Substance: LEDIPASVIR\SOFOSBUVIR
     Indication: HEPATITIS C
     Dosage: 1 DF, QD
     Route: 048
     Dates: start: 201502

REACTIONS (6)
  - Arrhythmia [Recovered/Resolved]
  - Syncope [Unknown]
  - Bundle branch block left [Unknown]
  - Bundle branch block right [Unknown]
  - Sinus bradycardia [Unknown]
  - Trifascicular block [Unknown]

NARRATIVE: CASE EVENT DATE: 20150222
